FAERS Safety Report 4337102-4 (Version None)
Quarter: 2004Q1

REPORT INFORMATION
  Report Type: 
  Country: None (occurrence: None)
  Receive Date: 20040329
  Receipt Date: 20040114
  Transmission Date: 20041129
  Serious: No
  Sender: FDA-Public Use
  Company Number: USA040156688

PATIENT
  Age: 38 Year
  Sex: Female

DRUGS (3)
  1. STRATTERA [Suspect]
     Dosage: 50 MG/IN THE MORNING
     Route: 048
     Dates: start: 20031201
  2. FROVA (FROVA) [Concomitant]
  3. INDERAL [Concomitant]

REACTIONS (2)
  - DIZZINESS [None]
  - HANGOVER [None]
